FAERS Safety Report 18365653 (Version 1)
Quarter: 2020Q4

REPORT INFORMATION
  Report Type: Spontaneous
  Country: US (occurrence: US)
  Receive Date: 20201009
  Receipt Date: 20201009
  Transmission Date: 20210114
  Serious: No
  Sender: FDA-Public Use
  Company Number: US-009507513-2010USA001478

PATIENT
  Age: 22 Year
  Sex: Female
  Weight: 84.35 kg

DRUGS (1)
  1. NUVARING [Suspect]
     Active Substance: ETHINYL ESTRADIOL\ETONOGESTREL
     Dosage: 0.12 MILLIGRAM
     Route: 067

REACTIONS (3)
  - No adverse event [Unknown]
  - Accidental underdose [Unknown]
  - Device expulsion [Unknown]

NARRATIVE: CASE EVENT DATE: 20201001
